FAERS Safety Report 5171404-7 (Version None)
Quarter: 2006Q4

REPORT INFORMATION
  Report Type: 
  Country: None (occurrence: None)
  Receive Date: 20061213
  Receipt Date: 20060301
  Transmission Date: 20070319
  Serious: Yes (Hospitalization)
  Sender: FDA-Public Use
  Company Number: US-AMGEN-STX170795

PATIENT
  Sex: Female

DRUGS (14)
  1. ENBREL [Suspect]
     Indication: RHEUMATOID ARTHRITIS
     Route: 058
     Dates: start: 20060101, end: 20060301
  2. ZOLOFT [Concomitant]
  3. NICOTINE TRANSDERMAL [Concomitant]
     Route: 062
  4. BIAXIN [Concomitant]
  5. DIAZEPAM [Concomitant]
  6. HYDROCODONE [Concomitant]
  7. GUAIFENESIN [Concomitant]
  8. FUROSEMIDE [Concomitant]
  9. EDECRIN [Concomitant]
  10. KLOR-CON [Concomitant]
  11. CYCLOSPORINE [Concomitant]
     Route: 047
  12. PREDNISONE TAB [Concomitant]
  13. HUMIRA [Concomitant]
  14. TOBRAMYCIN [Concomitant]
     Route: 047

REACTIONS (4)
  - BRONCHITIS [None]
  - INJECTION SITE PAIN [None]
  - PNEUMONIA [None]
  - SINUSITIS [None]
